FAERS Safety Report 6133411-7 (Version None)
Quarter: 2009Q1

REPORT INFORMATION
  Report Type: 
  Country: None (occurrence: None)
  Receive Date: 20090326
  Receipt Date: 20090326
  Transmission Date: 20090719
  Serious: Yes (Death, Hospitalization)
  Sender: FDA-Public Use
  Company Number: PHHO2005BE06869

PATIENT
  Sex: Female

DRUGS (1)
  1. CGS 20267 T30748+ [Suspect]
     Indication: BREAST CANCER
     Dosage: 2.5 MG, QD
     Route: 048
     Dates: start: 20000927

REACTIONS (11)
  - AREFLEXIA [None]
  - BRAIN DEATH [None]
  - CEREBELLAR HAEMORRHAGE [None]
  - CEREBROVASCULAR ACCIDENT [None]
  - CORNEAL REFLEX DECREASED [None]
  - HYDROCEPHALUS [None]
  - HYPERTENSION [None]
  - LOSS OF CONSCIOUSNESS [None]
  - PUPILS UNEQUAL [None]
  - RESPIRATORY DEPRESSION [None]
  - VOMITING [None]
